FAERS Safety Report 7769720-5 (Version None)
Quarter: 2011Q3

REPORT INFORMATION
  Report Type: 
  Country: None (occurrence: None)
  Receive Date: 20110922
  Receipt Date: 20110120
  Transmission Date: 20111222
  Serious: No
  Sender: FDA-Public Use
  Company Number: US-ASTRAZENECA-2011SE03637

PATIENT
  Age: 23 Year
  Sex: Male
  Weight: 102.1 kg

DRUGS (3)
  1. BUPROPION HCL [Concomitant]
  2. SEROQUEL XR [Suspect]
     Indication: BIPOLAR DISORDER
     Route: 048
     Dates: start: 20100301, end: 20110101
  3. LAMOTRIGINE [Concomitant]

REACTIONS (6)
  - TACHYPHRENIA [None]
  - CRYING [None]
  - MENTAL STATUS CHANGES [None]
  - INSOMNIA [None]
  - MOOD SWINGS [None]
  - DRUG DOSE OMISSION [None]
